FAERS Safety Report 15392436 (Version 1)
Quarter: 2018Q3

REPORT INFORMATION
  Report Type: Spontaneous
  Country: US (occurrence: US)
  Receive Date: 20180910
  Receipt Date: 20180910
  Transmission Date: 20181010
  Serious: No
  Sender: FDA-Public Use
  Company Number: None

PATIENT
  Sex: Female

DRUGS (9)
  1. CLONAZOPAM [Concomitant]
     Active Substance: CLONAZEPAM
  2. LYRICA [Concomitant]
     Active Substance: PREGABALIN
  3. MAGNESIUM [Concomitant]
     Active Substance: MAGNESIUM
  4. TIZANIDINE. [Concomitant]
     Active Substance: TIZANIDINE
  5. DIAZEPAM. [Concomitant]
     Active Substance: DIAZEPAM
  6. LISINOPRIL. [Concomitant]
     Active Substance: LISINOPRIL
  7. TECFIDERA [Suspect]
     Active Substance: DIMETHYL FUMARATE
     Route: 048
     Dates: start: 20151110
  8. DULOXETINE. [Concomitant]
     Active Substance: DULOXETINE
  9. GLUTATHIONE POW [Concomitant]

REACTIONS (1)
  - Flushing [None]
